FAERS Safety Report 15021814 (Version 3)
Quarter: 2019Q1

REPORT INFORMATION
  Report Type: Spontaneous
  Country: US (occurrence: US)
  Receive Date: 20180618
  Receipt Date: 20190206
  Transmission Date: 20190417
  Serious: Yes (Other)
  Sender: FDA-Public Use
  Company Number: US-SA-2017SA219959

PATIENT
  Age: 59 Year
  Sex: Male

DRUGS (18)
  1. VITAMIN B COMPLEX [Concomitant]
     Active Substance: CYANOCOBALAMIN\DEXPANTHENOL\NIACINAMIDE\PYRIDOXINE HYDROCHLORIDE\RIBOFLAVIN 5^-PHOSPHATE SODIUM\THIAMINE HYDROCHLORIDE\VITAMIN B COMPLEX
     Dosage: UNK UNK,UNK
     Route: 065
  2. TRAZODONE [Concomitant]
     Active Substance: TRAZODONE HYDROCHLORIDE
  3. CLINDAMYCIN. [Concomitant]
     Active Substance: CLINDAMYCIN
     Dosage: UNK UNK,UNK
     Route: 065
  4. MELATONIN [Concomitant]
     Active Substance: MELATONIN
  5. CELEBREX [Concomitant]
     Active Substance: CELECOXIB
  6. AUBAGIO [Suspect]
     Active Substance: TERIFLUNOMIDE
     Indication: MULTIPLE SCLEROSIS
     Dosage: 14 MG,QD
     Route: 048
     Dates: start: 20150529, end: 201805
  7. MYRBETRIQ [Concomitant]
     Active Substance: MIRABEGRON
     Dosage: UNK UNK,UNK
     Route: 065
  8. AMPYRA [Concomitant]
     Active Substance: DALFAMPRIDINE
  9. MAGNESIUM [Concomitant]
     Active Substance: MAGNESIUM
     Dosage: UNK UNK,UNK
     Route: 065
  10. ERGOCALCIFEROL. [Concomitant]
     Active Substance: ERGOCALCIFEROL
     Dosage: UNK UNK,UNK
     Route: 065
  11. GADOLINIUM [Suspect]
     Active Substance: GADOLINIUM
  12. OMEPRAZOLE. [Concomitant]
     Active Substance: OMEPRAZOLE
     Dosage: UNK UNK,UNK
     Route: 065
  13. LORAZEPAM. [Concomitant]
     Active Substance: LORAZEPAM
  14. BACLOFEN. [Concomitant]
     Active Substance: BACLOFEN
  15. BIOTIN [Concomitant]
     Active Substance: BIOTIN
     Dosage: UNK UNK,UNK
     Route: 065
  16. ASCORBIC ACID. [Concomitant]
     Active Substance: ASCORBIC ACID
     Dosage: UNK UNK,UNK
     Route: 065
  17. MIRAPEX [Concomitant]
     Active Substance: PRAMIPEXOLE DIHYDROCHLORIDE
  18. COENZYME [Concomitant]
     Active Substance: UBIDECARENONE

REACTIONS (10)
  - Asthenia [Unknown]
  - Nausea [Recovered/Resolved]
  - Product use issue [Unknown]
  - Feeling abnormal [Unknown]
  - Gait disturbance [Unknown]
  - Poor peripheral circulation [Unknown]
  - Diarrhoea [Recovered/Resolved]
  - Insomnia [Unknown]
  - Multiple sclerosis [Unknown]
  - Fatigue [Unknown]

NARRATIVE: CASE EVENT DATE: 20171031
